FAERS Safety Report 6906892-6 (Version None)
Quarter: 2010Q3

REPORT INFORMATION
  Report Type: 
  Country: None (occurrence: None)
  Receive Date: 20100804
  Receipt Date: 20100713
  Transmission Date: 20110219
  Serious: Yes (Congenital Anomaly)
  Sender: FDA-Public Use
  Company Number: US-GILEAD-2010-0030045

PATIENT
  Sex: Female

DRUGS (10)
  1. ATRIPLA [Suspect]
     Indication: HIV INFECTION
     Route: 064
     Dates: start: 20090903, end: 20090924
  2. COMBIVIR [Concomitant]
     Indication: HIV INFECTION
     Route: 064
     Dates: start: 20091015, end: 20100617
  3. RITONAVIR [Concomitant]
     Indication: HIV INFECTION
     Route: 064
     Dates: start: 20091015
  4. ATAZANAVIR SULFATE [Concomitant]
     Indication: HIV INFECTION
     Route: 064
     Dates: start: 20091015, end: 20100408
  5. ATAZANAVIR SULFATE [Concomitant]
     Route: 064
     Dates: start: 20090408
  6. ZIDOVUDINE [Concomitant]
     Indication: HIV INFECTION
     Route: 064
     Dates: start: 20100529, end: 20100529
  7. ZIDOVUDINE [Concomitant]
     Route: 064
     Dates: start: 20100529, end: 20100602
  8. H1N1 VACCINE [Concomitant]
     Route: 064
  9. ENGERIX-B [Concomitant]
     Route: 064
  10. TRIMETHOPRIM + SULFAMETHOXAZOLE [Concomitant]
     Route: 064

REACTIONS (1)
  - ACROCHORDON [None]
